FAERS Safety Report 13879548 (Version 1)
Quarter: 2017Q3

REPORT INFORMATION
  Report Type: Report from Study
  Country: None (occurrence: US)
  Receive Date: 20170817
  Receipt Date: 20170817
  Transmission Date: 20171127
  Serious: Yes (Hospitalization)
  Sender: FDA-Public Use
  Company Number: US-ABBVIE-17K-163-1943002-00

PATIENT
  Age: 23 Year
  Sex: Female
  Weight: 52.21 kg

DRUGS (1)
  1. HUMIRA [Suspect]
     Active Substance: ADALIMUMAB
     Indication: CROHN^S DISEASE
     Route: 058
     Dates: start: 201609

REACTIONS (12)
  - Nasopharyngitis [Recovered/Resolved]
  - Intestinal obstruction [Recovered/Resolved]
  - Nephrolithiasis [Not Recovered/Not Resolved]
  - Abdominal pain upper [Recovered/Resolved]
  - Sinusitis [Recovered/Resolved]
  - Renal pain [Recovered/Resolved]
  - Abdominal pain upper [Recovered/Resolved]
  - Milk allergy [Unknown]
  - Abscess intestinal [Recovered/Resolved]
  - Weight decreased [Recovered/Resolved]
  - Anxiety [Not Recovered/Not Resolved]
  - Depression [Not Recovered/Not Resolved]

NARRATIVE: CASE EVENT DATE: 201609
